FAERS Safety Report 4631562-7 (Version None)
Quarter: 2005Q2

REPORT INFORMATION
  Report Type: 
  Country: None (occurrence: None)
  Receive Date: 20050407
  Receipt Date: 20050330
  Transmission Date: 20051028
  Serious: Yes (Hospitalization, Other)
  Sender: FDA-Public Use
  Company Number: 2005-03-2153

PATIENT
  Sex: Female

DRUGS (1)
  1. PEG-INTRON [Suspect]
     Dosage: SUBCUTANEOUS
     Route: 058
     Dates: start: 20040101

REACTIONS (4)
  - DYSPEPSIA [None]
  - POLYCYTHAEMIA VERA [None]
  - PORTAL VEIN THROMBOSIS [None]
  - SPLENOMEGALY [None]
